FAERS Safety Report 22394786 (Version 11)
Quarter: 2024Q2

REPORT INFORMATION
  Report Type: Spontaneous
  Country: US (occurrence: US)
  Receive Date: 20230601
  Receipt Date: 20240502
  Transmission Date: 20240715
  Serious: No
  Sender: FDA-Public Use
  Company Number: US-PFIZER INC-202300135789

PATIENT
  Age: 87 Year
  Sex: Female

DRUGS (2)
  1. BOSULIF [Suspect]
     Active Substance: BOSUTINIB MONOHYDRATE
     Dosage: 100 MG
  2. BOSULIF [Suspect]
     Active Substance: BOSUTINIB MONOHYDRATE
     Dosage: TAKEN (3 TABS) 300 MG BY MOUTH ONCE DAILY; SHOULD BE TAKEN WITH FOOD
     Route: 048

REACTIONS (1)
  - Hypoacusis [Unknown]
